FAERS Safety Report 20035983 (Version 3)
Quarter: 2021Q4

REPORT INFORMATION
  Report Type: Spontaneous
  Country: PL (occurrence: PL)
  Receive Date: 20211105
  Receipt Date: 20211208
  Transmission Date: 20220303
  Serious: Yes (Hospitalization, Other)
  Sender: FDA-Public Use
  Company Number: PL-GALDERMA-PL2021018136

PATIENT

DRUGS (7)
  1. SOOLANTRA [Suspect]
     Active Substance: IVERMECTIN
     Indication: Rosacea
     Dosage: 1 DOSAGE FORM, SINGLE (ONCE)
     Route: 061
     Dates: start: 20210929
  2. AZITHROMYCIN ANHYDROUS [Concomitant]
     Active Substance: AZITHROMYCIN ANHYDROUS
     Indication: Conjunctivitis
     Dosage: 500 MILLIGRAM
     Route: 048
  3. NITRENDIPINE [Concomitant]
     Active Substance: NITRENDIPINE
     Indication: Product used for unknown indication
     Dosage: 20 MILLIGRAM
  4. CORHYDRON [HYDROCORTISONE] [Concomitant]
     Indication: Product used for unknown indication
     Dosage: 100 MILLIGRAM
  5. PHENAZOLINUM [Concomitant]
     Indication: Product used for unknown indication
     Dosage: 100 MILLIGRAM
  6. CALCIUM CHLORATUM [CALCIUM CHLORIDE] [Concomitant]
     Indication: Product used for unknown indication
     Dosage: 670 MILLIGRAM
  7. CAPTOPRIL [Concomitant]
     Active Substance: CAPTOPRIL
     Indication: Product used for unknown indication
     Dosage: 25 MILLIGRAM

REACTIONS (8)
  - Application site inflammation [Recovering/Resolving]
  - Application site swelling [Recovering/Resolving]
  - Application site exfoliation [Recovering/Resolving]
  - Application site dryness [Recovering/Resolving]
  - Application site scab [Recovering/Resolving]
  - Visual impairment [Recovering/Resolving]
  - Application site erythema [Recovering/Resolving]
  - Application site discharge [Recovering/Resolving]

NARRATIVE: CASE EVENT DATE: 20210930
